FAERS Safety Report 16568816 (Version 2)
Quarter: 2019Q3

REPORT INFORMATION
  Report Type: Report from Study
  Country: CO (occurrence: CO)
  Receive Date: 20190713
  Receipt Date: 20190911
  Transmission Date: 20191004
  Serious: Yes (Other)
  Sender: FDA-Public Use
  Company Number: PHHY2018CO063684

PATIENT
  Age: 61 Year
  Sex: Female
  Weight: 70 kg

DRUGS (2)
  1. REVOLADE [Suspect]
     Active Substance: ELTROMBOPAG
     Indication: IMMUNE THROMBOCYTOPENIC PURPURA
     Dosage: 50 MG, QD
     Route: 048
     Dates: start: 20180531, end: 201806
  2. REVOLADE [Suspect]
     Active Substance: ELTROMBOPAG
     Dosage: 50 MG, QD
     Route: 048

REACTIONS (24)
  - Influenza [Unknown]
  - Back pain [Unknown]
  - Pyrexia [Unknown]
  - Contusion [Unknown]
  - Lithiasis [Unknown]
  - Diarrhoea [Unknown]
  - Spinal pain [Unknown]
  - Drug intolerance [Unknown]
  - Cough [Unknown]
  - Chest pain [Unknown]
  - Peripheral swelling [Unknown]
  - Ear pain [Unknown]
  - Pain in extremity [Unknown]
  - Headache [Unknown]
  - Otorrhoea [Unknown]
  - Anaemia [Unknown]
  - Decreased appetite [Unknown]
  - Tympanic membrane perforation [Unknown]
  - Cardiovascular disorder [Unknown]
  - Skin infection [Unknown]
  - Arthralgia [Unknown]
  - Joint swelling [Unknown]
  - Malaise [Unknown]
  - Drug ineffective [Unknown]

NARRATIVE: CASE EVENT DATE: 20181217
